FAERS Safety Report 16082603 (Version 1)
Quarter: 2019Q1

REPORT INFORMATION
  Report Type: Report from Study
  Country: CN (occurrence: CN)
  Receive Date: 20190318
  Receipt Date: 20190318
  Transmission Date: 20190418
  Serious: Yes (Other)
  Sender: FDA-Public Use
  Company Number: CN-ROCHE-2283811

PATIENT

DRUGS (4)
  1. TRASTUZUMAB. [Suspect]
     Active Substance: TRASTUZUMAB
     Indication: HER-2 POSITIVE GASTRIC CANCER
     Dosage: DAY 1 OF FIRST CYCLE
     Route: 041
  2. IRINOTECAN HYDROCHLORIDE. [Suspect]
     Active Substance: IRINOTECAN HYDROCHLORIDE
     Indication: HER-2 POSITIVE GASTRIC CANCER
     Dosage: DAY 1 AND DAY 8 OF 21 DAYS
     Route: 041
  3. CISPLATIN. [Suspect]
     Active Substance: CISPLATIN
     Indication: HER-2 POSITIVE GASTRIC CANCER
     Dosage: ON DAY 1 AND DAY 3 OF 21 DAYS CYCLE.
     Route: 041
  4. TRASTUZUMAB. [Suspect]
     Active Substance: TRASTUZUMAB
     Dosage: FOR 6 CYCLES
     Route: 041

REACTIONS (2)
  - Liver injury [Unknown]
  - Bone marrow failure [Unknown]
